FAERS Safety Report 24571716 (Version 1)
Quarter: 2024Q4

REPORT INFORMATION
  Report Type: Spontaneous
  Country: US (occurrence: US)
  Receive Date: 20241101
  Receipt Date: 20241101
  Transmission Date: 20250115
  Serious: No
  Sender: TOLMAR
  Company Number: US-TOLMAR, INC.-24US053170

PATIENT
  Age: 52 Year
  Sex: Male

DRUGS (2)
  1. JATENZO [Suspect]
     Active Substance: TESTOSTERONE UNDECANOATE
     Indication: Blood testosterone decreased
     Dosage: 237 MILLIGRAM, BID
     Route: 048
     Dates: start: 20240615, end: 202410
  2. ZEPBOUND [Concomitant]
     Active Substance: TIRZEPATIDE
     Indication: Weight decreased
     Dosage: UNK
     Dates: start: 202402, end: 20240924

REACTIONS (2)
  - Gout [Not Recovered/Not Resolved]
  - Blood uric acid increased [Unknown]

NARRATIVE: CASE EVENT DATE: 20240628
